FAERS Safety Report 23784933 (Version 1)
Quarter: 2024Q2

REPORT INFORMATION
  Report Type: Spontaneous
  Country: US (occurrence: None)
  Receive Date: 20240425
  Receipt Date: 20240425
  Transmission Date: 20240715
  Serious: No
  Sender: FDA-Public Use
  Company Number: None

PATIENT
  Age: 79 Year
  Sex: Female
  Weight: 58.97 kg

DRUGS (2)
  1. LATANOPROST [Suspect]
     Active Substance: LATANOPROST
     Indication: Glaucoma
     Dosage: OTHER FREQUENCY : BEDTIME;?
     Route: 047
     Dates: start: 20240315, end: 20240402
  2. Brimonidine/Timol Op Sol [Concomitant]

REACTIONS (10)
  - Eye pain [None]
  - Superficial injury of eye [None]
  - Blindness [None]
  - Corneal abrasion [None]
  - Swelling face [None]
  - Retinal disorder [None]
  - Eye infection [None]
  - Nausea [None]
  - Strabismus [None]
  - Photophobia [None]

NARRATIVE: CASE EVENT DATE: 20240409
